FAERS Safety Report 14721744 (Version 3)
Quarter: 2018Q2

REPORT INFORMATION
  Report Type: Spontaneous
  Country: US (occurrence: US)
  Receive Date: 20180405
  Receipt Date: 20180425
  Transmission Date: 20180711
  Serious: No
  Sender: FDA-Public Use
  Company Number: US-009507513-1804USA001429

PATIENT
  Sex: Male

DRUGS (1)
  1. CLARINEX [Suspect]
     Active Substance: DESLORATADINE
     Route: 048

REACTIONS (8)
  - Headache [Unknown]
  - Dyspnoea [Unknown]
  - Product availability issue [Unknown]
  - Drug dose omission [Unknown]
  - Secretion discharge [Unknown]
  - Dysphagia [Unknown]
  - Head discomfort [Unknown]
  - Paranasal sinus discomfort [Unknown]
